FAERS Safety Report 4796743-0 (Version None)
Quarter: 2005Q4

REPORT INFORMATION
  Report Type: 
  Country: None (occurrence: None)
  Receive Date: 20051006
  Receipt Date: 20050215
  Transmission Date: 20060501
  Serious: Yes (Hospitalization, Other)
  Sender: FDA-Public Use
  Company Number: 2005000293

PATIENT
  Age: 17 Year
  Sex: Male

DRUGS (8)
  1. DOXORUBICIN HCL [Suspect]
     Indication: SARCOMA
     Dates: start: 20040816
  2. CLOZAPINE [Suspect]
     Indication: PSYCHOTIC DISORDER
     Dosage: 300 - 75 MILLIGRAM (QD), ORAL
     Route: 048
     Dates: start: 20040601
  3. CLOZAPINE [Suspect]
     Indication: SCHIZOPHRENIA
     Dosage: 300 - 75 MILLIGRAM (QD), ORAL
     Route: 048
     Dates: start: 20040601
  4. VINCRISTINE [Suspect]
     Indication: SARCOMA
     Dates: start: 20040816
  5. CYCLOPHOSPHAMIDE [Suspect]
     Indication: SARCOMA
     Dates: start: 20040816
  6. ETOPOSIDE [Suspect]
     Indication: SARCOMA
     Dates: start: 20040816
  7. CISPLATIN [Suspect]
     Indication: SARCOMA
     Dates: start: 20040816
  8. IFOSFAMIDE [Suspect]
     Indication: SARCOMA
     Dates: start: 20040816

REACTIONS (3)
  - AGRANULOCYTOSIS [None]
  - ANAEMIA [None]
  - THROMBOCYTOPENIA [None]
